FAERS Safety Report 8057027-0 (Version None)
Quarter: 2012Q1

REPORT INFORMATION
  Report Type: 
  Country: None (occurrence: None)
  Receive Date: 20120119
  Receipt Date: 20120118
  Transmission Date: 20120608
  Serious: No
  Sender: FDA-Public Use
  Company Number: US-B.I. PHARMACEUTICALS,INC./RIDGEFIELD-2012-BP-00987BP

PATIENT
  Sex: Male

DRUGS (15)
  1. CALCIUM [Concomitant]
     Indication: SUPPLEMENTATION THERAPY
     Route: 048
  2. SEREVENT [Concomitant]
     Indication: CHRONIC OBSTRUCTIVE PULMONARY DISEASE
     Route: 055
     Dates: start: 20100101
  3. ASPIRIN [Concomitant]
     Indication: PROPHYLAXIS
     Dosage: 81 MG
     Route: 048
  4. FISH OIL [Concomitant]
     Indication: SUPPLEMENTATION THERAPY
     Route: 048
  5. PRADAXA [Suspect]
     Indication: ATRIAL FIBRILLATION
     Dosage: 300 MG
     Route: 048
     Dates: start: 20111001
  6. COMBIVENT [Concomitant]
     Indication: BRONCHITIS CHRONIC
     Route: 055
     Dates: start: 20100101
  7. VENTOLIN [Concomitant]
     Indication: BRONCHITIS CHRONIC
     Route: 055
     Dates: start: 20100101
  8. CAPTOPRIL [Concomitant]
     Indication: HYPERTENSION
     Dosage: 50 MG
     Route: 048
  9. ALBUTEROL [Concomitant]
     Indication: BRONCHITIS CHRONIC
     Route: 055
     Dates: start: 20100101
  10. ZOCOR [Concomitant]
     Indication: BLOOD CHOLESTEROL INCREASED
     Dosage: 40 MG
     Route: 048
  11. METFORMIN [Concomitant]
     Indication: DIABETES MELLITUS
     Dosage: 1000 MG
     Route: 048
     Dates: start: 20100101
  12. SPIRIVA [Concomitant]
     Indication: CHRONIC OBSTRUCTIVE PULMONARY DISEASE
     Route: 055
     Dates: start: 20100101
  13. AMIODARONE HCL [Concomitant]
     Indication: ATRIAL FIBRILLATION
     Route: 048
  14. COREG [Concomitant]
     Indication: HYPERTENSION
     Dosage: 25 MG
     Route: 048
  15. PREDNISONE TAB [Concomitant]
     Indication: BRONCHITIS CHRONIC
     Dosage: 30 MG
     Route: 048
     Dates: start: 20100101

REACTIONS (5)
  - ASTHENIA [None]
  - HEADACHE [None]
  - GRIP STRENGTH DECREASED [None]
  - DIZZINESS [None]
  - HYPOAESTHESIA [None]
